FAERS Safety Report 8378654-7 (Version None)
Quarter: 2012Q2

REPORT INFORMATION
  Report Type: 
  Country: None (occurrence: None)
  Receive Date: 20120522
  Receipt Date: 20110613
  Transmission Date: 20120825
  Serious: No
  Sender: FDA-Public Use
  Company Number: US-ASTRAZENECA-2010SE41977

PATIENT
  Age: 66 Year

DRUGS (1)
  1. PRILOSEC [Suspect]
     Indication: BARRETT'S OESOPHAGUS
     Route: 048
     Dates: start: 20060101

REACTIONS (19)
  - BLOOD CREATININE INCREASED [None]
  - PAIN IN EXTREMITY [None]
  - NEPHROPATHY [None]
  - EMOTIONAL DISTRESS [None]
  - PAIN [None]
  - MUSCLE SPASMS [None]
  - VISION BLURRED [None]
  - ARTHRALGIA [None]
  - MYALGIA [None]
  - OBSTRUCTION [None]
  - ABNORMAL DREAMS [None]
  - CATARACT [None]
  - DEPRESSION [None]
  - SLEEP DISORDER [None]
  - DRUG INEFFECTIVE [None]
  - GENERAL PHYSICAL HEALTH DETERIORATION [None]
  - URINARY RETENTION [None]
  - MUSCULAR WEAKNESS [None]
  - ADVERSE DRUG REACTION [None]
